FAERS Safety Report 7273962-5 (Version None)
Quarter: 2011Q1

REPORT INFORMATION
  Report Type: 
  Country: None (occurrence: None)
  Receive Date: 20110203
  Receipt Date: 20110126
  Transmission Date: 20110831
  Serious: Yes (Hospitalization, Other)
  Sender: FDA-Public Use
  Company Number: US-MERCK-1009USA02659

PATIENT
  Age: 65 Year
  Sex: Female

DRUGS (4)
  1. ALENDRONATE SODIUM [Suspect]
     Indication: OSTEOPOROSIS
     Route: 048
     Dates: start: 20080402, end: 20080924
  2. ATENOLOL [Concomitant]
     Indication: BLOOD PRESSURE
     Route: 065
     Dates: start: 19900101
  3. NORVASC [Concomitant]
     Indication: BLOOD PRESSURE
     Route: 065
     Dates: start: 19920101
  4. FOSAMAX [Suspect]
     Indication: OSTEOPOROSIS
     Route: 048
     Dates: start: 19980101, end: 20081118

REACTIONS (21)
  - TOOTH DISORDER [None]
  - OSTEONECROSIS OF JAW [None]
  - BREAST CANCER [None]
  - TOOTH INFECTION [None]
  - DEPRESSION [None]
  - ROAD TRAFFIC ACCIDENT [None]
  - PERIODONTITIS [None]
  - ORAL INFECTION [None]
  - SINUS DISORDER [None]
  - NEPHROPATHY [None]
  - GINGIVAL INFECTION [None]
  - ARTHRITIS [None]
  - EXCESSIVE GRANULATION TISSUE [None]
  - INGUINAL HERNIA [None]
  - IMPAIRED HEALING [None]
  - DENTAL CARIES [None]
  - GINGIVAL BLEEDING [None]
  - ADVERSE DRUG REACTION [None]
  - ANXIETY [None]
  - PANIC DISORDER [None]
  - MAJOR DEPRESSION [None]
